FAERS Safety Report 4415209-0 (Version None)
Quarter: 2004Q3

REPORT INFORMATION
  Report Type: 
  Country: None (occurrence: None)
  Receive Date: 20040730
  Receipt Date: 20030429
  Transmission Date: 20050211
  Serious: Yes (Death)
  Sender: FDA-Public Use
  Company Number: 2003IM000468

PATIENT
  Age: 73 Year
  Sex: Male

DRUGS (7)
  1. ACTIMMUNE [Suspect]
     Indication: INTERSTITIAL LUNG DISEASE
     Dosage: 200 UG; TIW; SUBCUTANEOUS
     Route: 058
     Dates: start: 20021105, end: 20030423
  2. PREDNISONE [Concomitant]
  3. INSULIN [Concomitant]
  4. LASIX [Concomitant]
  5. ADVAIR [Concomitant]
  6. DIGOXIN [Concomitant]
  7. K-DUR 10 [Concomitant]

REACTIONS (11)
  - AORTIC STENOSIS [None]
  - CARDIAC FAILURE [None]
  - CARDIAC FAILURE CONGESTIVE [None]
  - DISEASE PROGRESSION [None]
  - DYSPNOEA EXACERBATED [None]
  - GENERAL PHYSICAL HEALTH DETERIORATION [None]
  - INFECTION [None]
  - INTERSTITIAL LUNG DISEASE [None]
  - PNEUMONIA [None]
  - PULMONARY FUNCTION TEST DECREASED [None]
  - RESPIRATORY ARREST [None]
